FAERS Safety Report 18690706 (Version 1)
Quarter: 2021Q1

REPORT INFORMATION
  Report Type: Spontaneous
  Country: US (occurrence: US)
  Receive Date: 20210101
  Receipt Date: 20210101
  Transmission Date: 20210419
  Serious: Yes (Other)
  Sender: FDA-Public Use
  Company Number: US-ROCHE-2738857

PATIENT
  Sex: Female
  Weight: 68.1 kg

DRUGS (3)
  1. MODAFINIL. [Concomitant]
     Active Substance: MODAFINIL
     Dosage: ONCE A DAY ;ONGOING: YES
  2. OCREVUS [Suspect]
     Active Substance: OCRELIZUMAB
     Indication: RELAPSING MULTIPLE SCLEROSIS
     Dosage: ONGOING: YES
     Route: 042
  3. ALENDRONATE [Concomitant]
     Active Substance: ALENDRONATE SODIUM
     Dosage: ONCE A WEEK ;ONGOING: YES

REACTIONS (8)
  - Systemic lupus erythematosus [Unknown]
  - Weight decreased [Unknown]
  - Multiple fractures [Unknown]
  - Joint dislocation [Unknown]
  - Asthenia [Unknown]
  - Muscle spasms [Unknown]
  - Rib fracture [Unknown]
  - Muscle tightness [Unknown]

NARRATIVE: CASE EVENT DATE: 2020
